FAERS Safety Report 8421722-1 (Version None)
Quarter: 2012Q2

REPORT INFORMATION
  Report Type: 
  Country: None (occurrence: None)
  Receive Date: 20120601
  Receipt Date: 20120524
  Transmission Date: 20120825
  Serious: Yes (Hospitalization)
  Sender: FDA-Public Use
  Company Number: 2012MA006591

PATIENT
  Age: 85 Year
  Sex: Female

DRUGS (11)
  1. METFORMIN HYDROCHLORIDE [Suspect]
     Indication: TYPE 2 DIABETES MELLITUS
     Dosage: 1000 MG;BID;PO
     Route: 048
     Dates: end: 20120515
  2. AMLODIPINE [Concomitant]
  3. CITALOPRAM ALTERNOVA [Concomitant]
  4. METOPROLOL SUCCINATE [Concomitant]
  5. ARAX [Concomitant]
  6. ANZOCAN [Concomitant]
  7. DIGOXIN [Suspect]
     Indication: CARDIAC DISORDER
     Dosage: 62.5 UG;TID;
     Dates: end: 20120515
  8. PERSANTINE [Concomitant]
  9. ASPIRIN [Concomitant]
  10. ISODUR [Concomitant]
  11. TOLMIN [Concomitant]

REACTIONS (6)
  - DYSPNOEA [None]
  - DECREASED APPETITE [None]
  - RENAL IMPAIRMENT [None]
  - MALAISE [None]
  - WEIGHT DECREASED [None]
  - FATIGUE [None]
